FAERS Safety Report 6988417-2 (Version None)
Quarter: 2010Q3

REPORT INFORMATION
  Report Type: 
  Country: None (occurrence: None)
  Receive Date: 20100916
  Receipt Date: 20100909
  Transmission Date: 20110219
  Serious: Yes (Hospitalization)
  Sender: FDA-Public Use
  Company Number: FI-BAYER-201038969GPV

PATIENT
  Age: 57 Year
  Sex: Male

DRUGS (2)
  1. CIPROXIN [Suspect]
     Indication: ARTHRITIS REACTIVE
     Dosage: UNIT DOSE: 500 MG
     Route: 048
     Dates: start: 20100101
  2. PREDNISOLON [Suspect]
     Indication: ARTHRITIS REACTIVE
     Route: 048
     Dates: start: 20090101

REACTIONS (2)
  - TENDON RUPTURE [None]
  - TENOSYNOVITIS [None]
